FAERS Safety Report 6663168-2 (Version None)
Quarter: 2010Q1

REPORT INFORMATION
  Report Type: 
  Country: None (occurrence: None)
  Receive Date: 20100331
  Receipt Date: 20100331
  Transmission Date: 20100710
  Serious: Yes (Hospitalization)
  Sender: FDA-Public Use
  Company Number: None

PATIENT
  Age: 85 Year
  Sex: Male
  Weight: 73.5 kg

DRUGS (13)
  1. GLEEVEC [Suspect]
     Indication: PROSTATE CANCER
     Dosage: 300 MG QD PO
     Route: 048
     Dates: start: 20100129, end: 20100312
  2. SORAFENIB [Suspect]
     Indication: PROSTATE CANCER
     Dosage: 400 MG QD PO
     Route: 048
     Dates: start: 20100129, end: 20100312
  3. ALLOPURINOL [Concomitant]
  4. ASPIRIN [Concomitant]
  5. BRIMONIDINE TARTRATE [Concomitant]
  6. CHOLESTYRAMINE [Concomitant]
  7. FELODIPINE [Concomitant]
  8. FLUNISOLIDE [Concomitant]
  9. FOLIC ACID [Concomitant]
  10. K+ [Concomitant]
  11. LUPRON [Concomitant]
  12. M.V.I. [Concomitant]
  13. OXYBUTYNIN CHLORIDE [Concomitant]

REACTIONS (4)
  - BLOOD CREATININE INCREASED [None]
  - CONTRAST MEDIA REACTION [None]
  - DEHYDRATION [None]
  - DIARRHOEA [None]
